FAERS Safety Report 4790643-8 (Version None)
Quarter: 2005Q4

REPORT INFORMATION
  Report Type: 
  Country: None (occurrence: None)
  Receive Date: 20051005
  Receipt Date: 20050919
  Transmission Date: 20060501
  Serious: Yes (Death)
  Sender: FDA-Public Use
  Company Number: DSA_70798_2005

PATIENT
  Age: 29 Year

DRUGS (2)
  1. METHADONE [Suspect]
     Dosage: DF
  2. COCAINE [Suspect]
     Dosage: DF

REACTIONS (1)
  - MULTIPLE DRUG OVERDOSE [None]
